FAERS Safety Report 14039871 (Version 1)
Quarter: 2017Q4

REPORT INFORMATION
  Report Type: Spontaneous
  Country: US (occurrence: US)
  Receive Date: 20171004
  Receipt Date: 20171004
  Transmission Date: 20180321
  Serious: Yes (Hospitalization)
  Sender: FDA-Public Use
  Company Number: US-IMPAX LABORATORIES, INC-2017-IPXL-02797

PATIENT
  Age: 72 Year
  Sex: Female

DRUGS (1)
  1. BACLOFEN. [Suspect]
     Active Substance: BACLOFEN
     Indication: MUSCLE SPASMS
     Dosage: 5 MG, 3 /DAY
     Route: 048

REACTIONS (7)
  - Loss of personal independence in daily activities [Recovering/Resolving]
  - Perseveration [Recovering/Resolving]
  - Mental status changes [Recovering/Resolving]
  - Confusional state [Recovering/Resolving]
  - Toxicity to various agents [Recovering/Resolving]
  - Aphasia [Recovering/Resolving]
  - Drug-disease interaction [Recovering/Resolving]
